FAERS Safety Report 9685527 (Version 1)
Quarter: 2013Q4

REPORT INFORMATION
  Report Type: Spontaneous
  Country: US (occurrence: None)
  Receive Date: 20131112
  Receipt Date: 20131112
  Transmission Date: 20140711
  Serious: Yes (Life-Threatening, Hospitalization)
  Sender: FDA-Public Use
  Company Number: None

PATIENT
  Age: 80 Year
  Sex: Female
  Weight: 73.3 kg

DRUGS (2)
  1. DABIGATRAN [Suspect]
     Indication: THROMBOSIS PROPHYLAXIS
     Route: 048
     Dates: start: 20130924, end: 20131024
  2. DABIGATRAN [Suspect]
     Indication: ATRIAL FIBRILLATION
     Route: 048
     Dates: start: 20130924, end: 20131024

REACTIONS (6)
  - Cardio-respiratory arrest [None]
  - Haematochezia [None]
  - Rectal haemorrhage [None]
  - Ecchymosis [None]
  - Contusion [None]
  - Gastrointestinal haemorrhage [None]
